FAERS Safety Report 24048243 (Version 3)
Quarter: 2024Q3

REPORT INFORMATION
  Report Type: Spontaneous
  Country: US (occurrence: US)
  Receive Date: 20240704
  Receipt Date: 20240821
  Transmission Date: 20241016
  Serious: Yes (Death, Hospitalization, Other)
  Sender: SANOFI AVENTIS
  Company Number: US-SA-SAC20240702001315

PATIENT
  Age: 49 Year
  Sex: Female

DRUGS (36)
  1. DUPIXENT [Suspect]
     Active Substance: DUPILUMAB
     Indication: Thrombocytopenia
     Dosage: 300 MG, QOW
     Route: 058
     Dates: start: 20240211, end: 20240528
  2. DUPIXENT [Suspect]
     Active Substance: DUPILUMAB
     Indication: Hepatic steatosis
  3. DUPIXENT [Suspect]
     Active Substance: DUPILUMAB
     Indication: Cardiac valve disease
  4. ACYCLOVIR [Concomitant]
     Active Substance: ACYCLOVIR
     Dosage: 800 MG, BID
     Route: 048
     Dates: start: 20230601
  5. AMLODIPINE [Concomitant]
     Active Substance: AMLODIPINE BESYLATE
     Indication: Hypertension
     Dosage: 5 MG, QD
     Route: 048
     Dates: start: 20240402
  6. BUPROPION [Concomitant]
     Active Substance: BUPROPION
     Dosage: 150 MG, QD
     Route: 048
     Dates: start: 20240404
  7. CHOLECALCIFEROL [Concomitant]
     Active Substance: CHOLECALCIFEROL
     Dosage: UNK UNK, QD
     Route: 048
     Dates: start: 20221031, end: 20240409
  8. CLOBETASOL [Concomitant]
     Active Substance: CLOBETASOL
     Dosage: UNK UNK, BID, AS NEEDED
     Route: 061
     Dates: start: 20240105
  9. CYCLOBENZAPRINE [Concomitant]
     Active Substance: CYCLOBENZAPRINE
     Indication: Muscle spasms
     Dosage: 5 MG, TID
     Route: 048
     Dates: start: 20240430
  10. DEXAMETHASONE [Concomitant]
     Active Substance: DEXAMETHASONE
     Dosage: SWISH WITH IQ ML TO TIMES PER DAY FAR MINUTES THEN SPIT, AVO\D EATING AR DRINKING FOR 30 MINUTES AFT
     Route: 048
     Dates: start: 20231017
  11. ALUM [Concomitant]
     Active Substance: POTASSIUM ALUM
     Dosage: UNK
     Dates: start: 20240403
  12. MAGNESIUM HYDROXIDE [Concomitant]
     Active Substance: MAGNESIUM HYDROXIDE
     Dosage: UNK
     Dates: start: 20240403
  13. ERGOCALCIFEROL [Concomitant]
     Active Substance: ERGOCALCIFEROL
     Dosage: UNK UNK, QM
     Route: 048
     Dates: start: 20240207
  14. FLUCONAZOLE [Concomitant]
     Active Substance: FLUCONAZOLE
     Dosage: UNK UNK, QD
     Route: 048
     Dates: start: 20240409
  15. HYDROMORPHONE [Concomitant]
     Active Substance: HYDROMORPHONE
     Indication: Pain
     Dosage: UNK UNK, Q4H
     Route: 048
     Dates: start: 20240507, end: 20240606
  16. ISAVUCONAZONIUM [Concomitant]
     Active Substance: ISAVUCONAZONIUM
     Dosage: 2 DF, QD
     Route: 048
     Dates: start: 20240508
  17. LIDOCAINE VISCOUS [Concomitant]
     Active Substance: LIDOCAINE HYDROCHLORIDE
     Dosage: UNK
     Dates: start: 20240426
  18. DIPHENHYDRAMINE [Concomitant]
     Active Substance: DIPHENHYDRAMINE
     Dosage: UNK UNK, Q6H, SWISH AND SPIT 15ML BY MOUTH EVERY 6 HOURS AS NEEDED
     Route: 048
  19. LORAZEPAM [Concomitant]
     Active Substance: LORAZEPAM
     Indication: Anxiety
     Dosage: 1 DF, Q8H
     Route: 048
     Dates: start: 20231201, end: 20231231
  20. ENSURE [Concomitant]
     Active Substance: AMINO ACIDS\DEXTROSE\ELECTROLYTES NOS\SOYBEAN OIL\VITAMINS
     Dosage: UNK
     Dates: start: 20231207
  21. LIQUID [Concomitant]
     Active Substance: TROLAMINE SALICYLATE
     Dosage: UNK UNK, QD
     Route: 048
  22. OLANZAPINE [Concomitant]
     Active Substance: OLANZAPINE
     Dosage: DISSOLVE I TABLET ON TOP OF TONGUE AT BEDTIME - ORAL
     Route: 048
     Dates: start: 20240305
  23. ONDANSETRON [Concomitant]
     Active Substance: ONDANSETRON
     Indication: Nausea
     Dosage: UNK UNK, Q6H, TAKE 1 TABLET BY MOUTH EVERY 6 HOURS AS NEEDED
     Route: 048
     Dates: start: 20240111
  24. ONDANSETRON [Concomitant]
     Active Substance: ONDANSETRON
     Indication: Vomiting
  25. PANTOPRAZOLE [Concomitant]
     Active Substance: PANTOPRAZOLE
     Dosage: 1 DF, Q12H
     Route: 048
     Dates: start: 20240206
  26. PREDNISOLONE ACETATE [Concomitant]
     Active Substance: PREDNISOLONE ACETATE
     Dosage: UNK UNK, BID
     Route: 047
     Dates: start: 20231121
  27. PYRIDOXINE HYDROCHLORIDE [Concomitant]
     Active Substance: PYRIDOXINE HYDROCHLORIDE
     Dosage: 1 DF
     Route: 048
     Dates: start: 20240501
  28. SERTRALINE [Concomitant]
     Active Substance: SERTRALINE HYDROCHLORIDE
     Dosage: UNK, QD
     Route: 048
     Dates: start: 20240404
  29. VITAMINS NOS [Concomitant]
     Active Substance: VITAMINS
     Dosage: 2 DF, QID
     Route: 048
     Dates: start: 20240401
  30. SULFAMETHOXAZOLE AND TRIMETHOPRIM [Concomitant]
     Active Substance: SULFAMETHOXAZOLE\TRIMETHOPRIM
     Dosage: 1 DF, TAKE I TABLET BY MOUTH 2 TIMES DAILY (TAKE ON MONDAY AND FRIDAY)
     Route: 048
     Dates: start: 20240315, end: 20240514
  31. TACROLIMUS [Concomitant]
     Active Substance: TACROLIMUS
     Dosage: APPLY 1 APPLICATION TOPICALLY TO THE AFFECTED AREA 2 TIMES DAILY, BID
     Route: 061
     Dates: start: 20240103
  32. BUTRAN XR [Concomitant]
     Indication: Cancer pain
  33. METHADONE [Concomitant]
     Active Substance: METHADONE HYDROCHLORIDE
     Indication: Cancer pain
  34. VITAMIN A [Concomitant]
     Active Substance: VITAMIN A
     Dosage: UNK UNK, QD
     Route: 048
     Dates: start: 20240501
  35. URSODIOL [Concomitant]
     Active Substance: URSODIOL
     Indication: Hypertransaminasaemia
     Dosage: 1 DF, Q12H
     Route: 048
     Dates: start: 20240401, end: 20240630
  36. ZINC SULFATE [ZINC SULFATE MONOHYDRATE] [Concomitant]
     Dosage: UNK UNK, QD
     Route: 048
     Dates: start: 20240501

REACTIONS (33)
  - Spinal cord neoplasm [Fatal]
  - Muscular weakness [Fatal]
  - Disease progression [Fatal]
  - Hypoaesthesia [Fatal]
  - Acute respiratory failure [Unknown]
  - Hypobarism [Unknown]
  - Urinary tract infection [Unknown]
  - Constipation [Unknown]
  - Anal incontinence [Unknown]
  - Flatulence [Unknown]
  - Back pain [Unknown]
  - Dysphagia [Unknown]
  - Mucosal inflammation [Unknown]
  - Thrombosis [Unknown]
  - Vitamin D deficiency [Unknown]
  - Nausea [Unknown]
  - Oral candidiasis [Unknown]
  - White blood cell count increased [Unknown]
  - Haemoglobin increased [Unknown]
  - Platelet count increased [Unknown]
  - Hypoalbuminaemia [Unknown]
  - Liver function test increased [Unknown]
  - Anxiety [Unknown]
  - Depression [Unknown]
  - Mean cell volume increased [Unknown]
  - Haematocrit decreased [Unknown]
  - Blood chloride increased [Unknown]
  - Blood urea increased [Unknown]
  - Gamma-glutamyltransferase increased [Unknown]
  - Lymphocyte count decreased [Unknown]
  - Blood alkaline phosphatase increased [Unknown]
  - Product use in unapproved indication [Unknown]
  - Drug effective for unapproved indication [Unknown]

NARRATIVE: CASE EVENT DATE: 20240101
